FAERS Safety Report 7958523-4 (Version None)
Quarter: 2011Q4

REPORT INFORMATION
  Report Type: 
  Country: None (occurrence: None)
  Receive Date: 20111206
  Receipt Date: 20111128
  Transmission Date: 20120403
  Serious: Yes (Hospitalization)
  Sender: FDA-Public Use
  Company Number: US-BIOGENIDEC-2011BI045456

PATIENT
  Age: 51 Year
  Sex: Female
  Weight: 57 kg

DRUGS (11)
  1. ATIVAN [Concomitant]
     Route: 048
  2. MOTRIN [Concomitant]
     Route: 048
  3. AMBIEN [Concomitant]
     Indication: INSOMNIA
     Route: 048
  4. BENADRYL [Concomitant]
     Route: 048
  5. ATIVAN [Concomitant]
     Indication: ANXIETY
     Route: 048
  6. MOTRIN [Concomitant]
     Indication: PAIN
     Route: 048
  7. BUPROPION HCL [Concomitant]
     Route: 048
  8. OMEPRAZOLE [Concomitant]
     Route: 048
  9. TYSABRI [Suspect]
     Indication: MULTIPLE SCLEROSIS
     Route: 042
     Dates: start: 20080520
  10. LORTAB [Concomitant]
     Indication: PAIN
     Route: 048
  11. NEURONTIN [Concomitant]
     Route: 048

REACTIONS (2)
  - SEPSIS [None]
  - PNEUMONIA [None]
